FAERS Safety Report 25299197 (Version 2)
Quarter: 2025Q2

REPORT INFORMATION
  Report Type: Spontaneous
  Country: CO (occurrence: CO)
  Receive Date: 20250512
  Receipt Date: 20250604
  Transmission Date: 20250717
  Serious: Yes (Death, Hospitalization)
  Sender: BOEHRINGER INGELHEIM
  Company Number: CO-BoehringerIngelheim-2025-BI-026843

PATIENT
  Age: 62 Year
  Sex: Male

DRUGS (1)
  1. OFEV [Suspect]
     Active Substance: NINTEDANIB
     Indication: Pulmonary fibrosis
     Dates: start: 20230501, end: 20250503

REACTIONS (2)
  - Pulmonary fibrosis [Fatal]
  - Respiratory failure [Fatal]

NARRATIVE: CASE EVENT DATE: 20250501
